FAERS Safety Report 7558378-6 (Version None)
Quarter: 2011Q2

REPORT INFORMATION
  Report Type: 
  Country: None (occurrence: None)
  Receive Date: 20110620
  Receipt Date: 20110610
  Transmission Date: 20111010
  Serious: Yes (Other)
  Sender: FDA-Public Use
  Company Number: PHFR2011GB03171

PATIENT
  Sex: Male

DRUGS (2)
  1. SUNITINIB MALATE [Suspect]
     Dosage: 50 MG/DAY FOR 4 WEEKS THEN 2 WEEKS OF TREATMENT TO COMPLETE 6 WEEK COURSE
  2. ZOMETA [Suspect]
     Dosage: 4 MG EVERY 4 WEEKS

REACTIONS (3)
  - OSTEONECROSIS OF JAW [None]
  - EXPOSED BONE IN JAW [None]
  - ORAL DISORDER [None]
